FAERS Safety Report 6496760-9 (Version None)
Quarter: 2009Q4

REPORT INFORMATION
  Report Type: 
  Country: None (occurrence: None)
  Receive Date: 20091211
  Receipt Date: 20091130
  Transmission Date: 20100525
  Serious: Yes (Hospitalization)
  Sender: FDA-Public Use
  Company Number: 2009SP035339

PATIENT
  Age: 57 Year
  Sex: Female

DRUGS (4)
  1. MIRTAZAPINE [Suspect]
     Indication: SLEEP DISORDER
     Dosage: 7.5 MG;QD;PO; 15 MG;QD;PO
     Route: 048
     Dates: start: 20090901, end: 20090902
  2. MIRTAZAPINE [Suspect]
     Indication: SLEEP DISORDER
     Dosage: 7.5 MG;QD;PO; 15 MG;QD;PO
     Route: 048
     Dates: start: 20090903, end: 20090909
  3. COTRIM [Suspect]
     Indication: URINARY TRACT INFECTION
     Dosage: 1920 MG;QD;PO
     Route: 048
     Dates: start: 20090904, end: 20090909
  4. TIMONIL [Concomitant]

REACTIONS (2)
  - CONDITION AGGRAVATED [None]
  - HEADACHE [None]
